FAERS Safety Report 8081769-4 (Version None)
Quarter: 2012Q1

REPORT INFORMATION
  Report Type: 
  Country: None (occurrence: None)
  Receive Date: 20120130
  Receipt Date: 20120119
  Transmission Date: 20120608
  Serious: Yes (Hospitalization, Other)
  Sender: FDA-Public Use
  Company Number: US-ASTRAZENECA-2011SE37131

PATIENT
  Age: 40 Year
  Sex: Female
  Weight: 58.1 kg

DRUGS (10)
  1. SEROQUEL [Suspect]
     Indication: BIPOLAR DISORDER
     Dosage: 200 MG AT NIGHT AND 25 MG 4 TIMES A DAY
     Route: 048
     Dates: start: 20060101
  2. SEROQUEL [Suspect]
     Route: 048
     Dates: start: 20110101
  3. SEROQUEL [Suspect]
     Route: 048
     Dates: start: 20110101
  4. ZOLOFT [Concomitant]
  5. ZESTRIL [Concomitant]
     Route: 048
  6. SIROCET [Concomitant]
     Indication: HEADACHE
     Dosage: EVERY 4 TO 6 HRS AS REQUIRED
  7. SEROQUEL [Suspect]
     Indication: ANXIETY
     Dosage: 200 MG AT NIGHT AND 25 MG 4 TIMES A DAY
     Route: 048
     Dates: start: 20060101
  8. ALPRAZOLAM [Concomitant]
     Dosage: FOUR TIMES A DAY
  9. SEROQUEL [Suspect]
     Route: 048
     Dates: start: 20080101
  10. SEROQUEL [Suspect]
     Route: 048
     Dates: start: 20080101

REACTIONS (3)
  - DRUG DOSE OMISSION [None]
  - NASOPHARYNGITIS [None]
  - MENTAL DISORDER [None]
